FAERS Safety Report 10170189 (Version 2)
Quarter: 2014Q2

REPORT INFORMATION
  Report Type: Spontaneous
  Country: DE (occurrence: DE)
  Receive Date: 20140513
  Receipt Date: 20140522
  Transmission Date: 20141212
  Serious: Yes (Other)
  Sender: FDA-Public Use
  Company Number: DE-GALDERMA-DE14001703

PATIENT
  Age: 22 Year
  Sex: Male
  Weight: 72 kg

DRUGS (2)
  1. ORAYCEA [Suspect]
     Indication: ACNE
     Route: 048
     Dates: start: 20131220
  2. EPIDUO [Suspect]
     Indication: ACNE
     Dosage: 0.1%-2.5%
     Route: 061

REACTIONS (2)
  - Leukopenia [Recovered/Resolved]
  - Off label use [Not Recovered/Not Resolved]
